FAERS Safety Report 13704973 (Version 2)
Quarter: 2017Q3

REPORT INFORMATION
  Report Type: Spontaneous
  Country: RU (occurrence: RU)
  Receive Date: 20170630
  Receipt Date: 20170811
  Transmission Date: 20171127
  Serious: Yes (Hospitalization, Other)
  Sender: FDA-Public Use
  Company Number: RU-ASTRAZENECA-2017SE66649

PATIENT
  Age: 59 Year
  Sex: Female
  Weight: 88 kg

DRUGS (6)
  1. THIOCTACID [Concomitant]
     Active Substance: THIOCTIC ACID
  2. PERINEVA [Concomitant]
     Active Substance: PERINDOPRIL ERBUMINE
  3. FORXIGA [Suspect]
     Active Substance: DAPAGLIFLOZIN
     Indication: TYPE 2 DIABETES MELLITUS
     Route: 048
     Dates: start: 201701
  4. INSULIN [Concomitant]
     Active Substance: INSULIN NOS
  5. METFORMIN [Concomitant]
     Active Substance: METFORMIN HYDROCHLORIDE
  6. OMEPRAZOLE. [Concomitant]
     Active Substance: OMEPRAZOLE

REACTIONS (4)
  - Inflammation [Unknown]
  - Wound abscess [Not Recovered/Not Resolved]
  - Nasopharyngitis [Recovered/Resolved]
  - Toe amputation [Unknown]

NARRATIVE: CASE EVENT DATE: 20170619
